FAERS Safety Report 10356365 (Version 1)
Quarter: 2014Q3

REPORT INFORMATION
  Report Type: Spontaneous
  Country: US (occurrence: None)
  Receive Date: 20140730
  Receipt Date: 20140730
  Transmission Date: 20150326
  Serious: No
  Sender: FDA-Public Use
  Company Number: None

PATIENT
  Age: 56 Year
  Sex: Male

DRUGS (3)
  1. CISPLATIN. [Suspect]
     Active Substance: CISPLATIN
  2. SORAFENIB [Suspect]
     Active Substance: SORAFENIB
  3. TAXOTERE [Suspect]
     Active Substance: DOCETAXEL

REACTIONS (6)
  - Nausea [None]
  - Chest pain [None]
  - Abdominal tenderness [None]
  - Vomiting [None]
  - Muscle spasms [None]
  - Oropharyngeal pain [None]

NARRATIVE: CASE EVENT DATE: 20140624
